FAERS Safety Report 17146193 (Version 1)
Quarter: 2019Q4

REPORT INFORMATION
  Report Type: Spontaneous
  Country: FR (occurrence: FR)
  Receive Date: 20191212
  Receipt Date: 20191212
  Transmission Date: 20200122
  Serious: Yes (Other)
  Sender: FDA-Public Use
  Company Number: FR-MYLANLABS-2019M1121284

PATIENT
  Age: 69 Year
  Sex: Female
  Weight: 82 kg

DRUGS (5)
  1. INSULINE                           /01223401/ [Concomitant]
     Active Substance: INSULIN NOS
     Dosage: UNK
     Dates: start: 20190830
  2. PREGABALIN MYLAN 100 MG HARD CAPSULES [Suspect]
     Active Substance: PREGABALIN
     Indication: NEURALGIA
     Dosage: 300 MILLIGRAM, QD
     Route: 048
     Dates: start: 20190914, end: 20190926
  3. IOMERON [Suspect]
     Active Substance: IOMEPROL
     Indication: COMPUTERISED TOMOGRAM
     Dosage: 65 MILLILITER, TOTAL
     Route: 042
     Dates: start: 20190913, end: 20190913
  4. LOVENOX [Concomitant]
     Active Substance: ENOXAPARIN SODIUM
     Dosage: MAMMIFERE/PORC/MUQUEUSE INTESTINALE
     Route: 058
     Dates: start: 20190904
  5. INEXIUM                            /01479302/ [Concomitant]
     Active Substance: ESOMEPRAZOLE MAGNESIUM
     Dosage: UNK
     Route: 048
     Dates: start: 20190903

REACTIONS (1)
  - Acute generalised exanthematous pustulosis [Recovered/Resolved]

NARRATIVE: CASE EVENT DATE: 20190916
